FAERS Safety Report 12900719 (Version 3)
Quarter: 2017Q1

REPORT INFORMATION
  Report Type: Spontaneous
  Country: US (occurrence: US)
  Receive Date: 20161101
  Receipt Date: 20170321
  Transmission Date: 20170428
  Serious: Yes (Hospitalization, Other)
  Sender: FDA-Public Use
  Company Number: US-PFIZER INC-2016501920

PATIENT
  Age: 12 Year
  Sex: Male

DRUGS (6)
  1. XANAX [Suspect]
     Active Substance: ALPRAZOLAM
     Dosage: 0.5 MG, 3X/DAY
  2. XANAX [Suspect]
     Active Substance: ALPRAZOLAM
     Dosage: 2 MG, DAILY
     Dates: start: 1999
  3. OXYCODONE [Concomitant]
     Active Substance: OXYCODONE
     Dosage: 30 MG, UNK
  4. XANAX [Suspect]
     Active Substance: ALPRAZOLAM
     Indication: ANXIETY
     Dosage: UNK 1/2 OF A XANAX BAR (2 MG) )
  5. XANAX [Suspect]
     Active Substance: ALPRAZOLAM
     Dosage: 2 MG, UNK (6 TO 10 BARS (2MG) EVERY DAY AND NIGHT)
  6. OXYCODONE [Concomitant]
     Active Substance: OXYCODONE
     Indication: PAIN
     Dosage: 15 MG, UNK

REACTIONS (20)
  - Overdose [Unknown]
  - Crime [Recovered/Resolved]
  - Nightmare [Not Recovered/Not Resolved]
  - Gambling [Recovered/Resolved]
  - Aggression [Unknown]
  - Drug administered to patient of inappropriate age [Recovered/Resolved]
  - Theft [Recovered/Resolved]
  - Drug abuse [Recovered/Resolved]
  - Depression [Not Recovered/Not Resolved]
  - Abnormal behaviour [Recovered/Resolved]
  - Energy increased [Recovered/Resolved]
  - Post-traumatic stress disorder [Not Recovered/Not Resolved]
  - Mania [Not Recovered/Not Resolved]
  - Condition aggravated [Not Recovered/Not Resolved]
  - Drug dependence [Recovered/Resolved]
  - Anxiety [Not Recovered/Not Resolved]
  - Loss of consciousness [Recovered/Resolved]
  - Homicide [Recovered/Resolved]
  - Drug tolerance [Recovered/Resolved]
  - Sleep terror [Not Recovered/Not Resolved]

NARRATIVE: CASE EVENT DATE: 1997
